FAERS Safety Report 6881435-4 (Version None)
Quarter: 2010Q3

REPORT INFORMATION
  Report Type: 
  Country: None (occurrence: None)
  Receive Date: 20100728
  Receipt Date: 20100728
  Transmission Date: 20110219
  Serious: No
  Sender: FDA-Public Use
  Company Number: None

PATIENT
  Sex: Female
  Weight: 47.6277 kg

DRUGS (1)
  1. ZYPREXA [Suspect]

REACTIONS (7)
  - ACTIVITIES OF DAILY LIVING IMPAIRED [None]
  - ASPIRATION [None]
  - COMMUNICATION DISORDER [None]
  - GASTROINTESTINAL TUBE INSERTION [None]
  - MUSCLE CONTRACTURE [None]
  - SCREAMING [None]
  - WHEELCHAIR USER [None]
